FAERS Safety Report 25472157 (Version 1)
Quarter: 2025Q2

REPORT INFORMATION
  Report Type: Spontaneous
  Country: ES (occurrence: ES)
  Receive Date: 20250624
  Receipt Date: 20250624
  Transmission Date: 20250716
  Serious: Yes (Hospitalization, Other)
  Sender: AUROBINDO
  Company Number: ES-AEMPS-1691473

PATIENT
  Age: 13 Year
  Sex: Female

DRUGS (2)
  1. IBUPROFEN SODIUM [Suspect]
     Active Substance: IBUPROFEN SODIUM
     Indication: Pain
     Dosage: 400 MILLIGRAM, 3 TIMES A DAY (1 EVERY 8 HOURS)
     Route: 048
     Dates: start: 20240327, end: 20250326
  2. ACETAMINOPHEN [Suspect]
     Active Substance: ACETAMINOPHEN
     Indication: Pain
     Dosage: 650 MILLIGRAM, 3 TIMES A DAY (1 COMPRIMIDO CADA 6H)
     Route: 048
     Dates: start: 20241214, end: 20241218

REACTIONS (1)
  - Hepatic failure [Recovered/Resolved]

NARRATIVE: CASE EVENT DATE: 20241214
